FAERS Safety Report 10960325 (Version 1)
Quarter: 2015Q1

REPORT INFORMATION
  Report Type: Report from Study
  Country: PL (occurrence: PL)
  Receive Date: 20150327
  Receipt Date: 20150327
  Transmission Date: 20150721
  Serious: Yes (Life-Threatening, Hospitalization, Disabling, Other)
  Sender: FDA-Public Use
  Company Number: PL-JNJFOC-20140216023

PATIENT
  Age: 84 Year
  Sex: Female
  Weight: 51 kg

DRUGS (11)
  1. DIUVER [Concomitant]
     Active Substance: TORSEMIDE
     Route: 065
  2. PRAMOLAN [Concomitant]
     Route: 065
     Dates: start: 20140624
  3. SPIRONOL [Concomitant]
     Active Substance: SPIRONOLACTONE
     Route: 065
     Dates: start: 201312
  4. VINPOCETINE [Concomitant]
     Active Substance: VINPOCETINE
     Route: 065
     Dates: start: 201312
  5. CARVEDILOL. [Concomitant]
     Active Substance: CARVEDILOL
     Route: 065
  6. DIGOXIN. [Concomitant]
     Active Substance: DIGOXIN
     Route: 065
     Dates: start: 2010
  7. EUTHYROX [Concomitant]
     Active Substance: LEVOTHYROXINE SODIUM
     Route: 065
     Dates: start: 201312
  8. FUROSEMID [Concomitant]
     Active Substance: FUROSEMIDE
     Route: 065
     Dates: start: 20140624
  9. XARELTO [Suspect]
     Active Substance: RIVAROXABAN
     Indication: ATRIAL FIBRILLATION
     Route: 048
     Dates: start: 20130925
  10. XARELTO [Suspect]
     Active Substance: RIVAROXABAN
     Indication: CEREBROVASCULAR ACCIDENT PROPHYLAXIS
     Route: 048
     Dates: start: 20130925
  11. ATORVASTATIN CALCIUM. [Concomitant]
     Active Substance: ATORVASTATIN CALCIUM
     Route: 065
     Dates: start: 201312

REACTIONS (3)
  - Pulmonary oedema [Recovered/Resolved]
  - Cardiac failure chronic [Recovered/Resolved]
  - Ischaemic stroke [Recovered/Resolved]

NARRATIVE: CASE EVENT DATE: 20131226
